FAERS Safety Report 18666500 (Version 1)
Quarter: 2020Q4

REPORT INFORMATION
  Report Type: Spontaneous
  Country: JP (occurrence: JP)
  Receive Date: 20201227
  Receipt Date: 20201227
  Transmission Date: 20210114
  Serious: Yes (Hospitalization, Other)
  Sender: FDA-Public Use
  Company Number: NVSJ2020JP012034

PATIENT
  Age: 72 Year
  Sex: Female

DRUGS (12)
  1. ROTIGOTINE [Suspect]
     Active Substance: ROTIGOTINE
     Dosage: 4.5 MG, QD
     Route: 062
  2. ROPINIROLE. [Concomitant]
     Active Substance: ROPINIROLE
     Indication: PARKINSON^S DISEASE
     Dosage: 40 MG, QD
     Route: 062
  3. LEVODOPA [Concomitant]
     Active Substance: LEVODOPA
     Dosage: 750 MG
     Route: 048
  4. ZONISAMIDE. [Concomitant]
     Active Substance: ZONISAMIDE
     Indication: PARKINSON^S DISEASE
     Dosage: 25 MG, QD
     Route: 048
  5. COMTAN [Suspect]
     Active Substance: ENTACAPONE
     Indication: PARKINSON^S DISEASE
     Dosage: 100 MG, TID
     Route: 048
  6. PRAMIPEXOLE. [Suspect]
     Active Substance: PRAMIPEXOLE
     Indication: PARKINSON^S DISEASE
     Dosage: UNK
     Route: 048
  7. ROTIGOTINE [Suspect]
     Active Substance: ROTIGOTINE
     Indication: PARKINSON^S DISEASE
     Dosage: 36 MG, QD
     Route: 062
  8. ROTIGOTINE [Suspect]
     Active Substance: ROTIGOTINE
     Dosage: 27 MG, QD
     Route: 062
  9. ROTIGOTINE [Suspect]
     Active Substance: ROTIGOTINE
     Dosage: UNK
     Route: 062
  10. LEVODOPA [Concomitant]
     Active Substance: LEVODOPA
     Indication: PARKINSON^S DISEASE
     Dosage: UNK, 5QD
     Route: 048
     Dates: start: 2010
  11. ZONISAMIDE. [Concomitant]
     Active Substance: ZONISAMIDE
     Dosage: 20 MG
     Route: 048
  12. ISTRADEFYLLINE [Concomitant]
     Active Substance: ISTRADEFYLLINE
     Indication: PARKINSON^S DISEASE
     Dosage: 20 MG, QD
     Route: 048

REACTIONS (5)
  - Formication [Unknown]
  - Intentional self-injury [Unknown]
  - Gait disturbance [Unknown]
  - Delirium [Unknown]
  - Delusion of parasitosis [Unknown]
